FAERS Safety Report 10182988 (Version 4)
Quarter: 2014Q3

REPORT INFORMATION
  Report Type: Spontaneous
  Country: US (occurrence: US)
  Receive Date: 20140520
  Receipt Date: 20140711
  Transmission Date: 20150326
  Serious: No
  Sender: FDA-Public Use
  Company Number: US-PFIZER INC-2014136574

PATIENT
  Sex: Male

DRUGS (30)
  1. POLYETHYLENE GLYCOL POWDER [Concomitant]
     Dosage: 1 SCOOP WITH 8 OZ H20, 2XDAY
  2. VITAMIN B COMPLEX [Concomitant]
     Active Substance: CYANOCOBALAMIN\DEXPANTHENOL\NIACINAMIDE\PYRIDOXINE HYDROCHLORIDE\RIBOFLAVIN 5^-PHOSPHATE SODIUM\THIAMINE HYDROCHLORIDE\VITAMIN B COMPLEX
     Dosage: UNK
  3. VITAMIN B12 [Concomitant]
     Active Substance: CYANOCOBALAMIN
     Dosage: UNK
  4. LIDODERM [Concomitant]
     Active Substance: LIDOCAINE
     Indication: PAIN
     Dosage: 5%, PATCHES PM
  5. VALIUM [Concomitant]
     Active Substance: DIAZEPAM
     Dosage: 10 MG, 1X DAY AS NEEDED
  6. METFORMIN [Concomitant]
     Active Substance: METFORMIN HYDROCHLORIDE
     Dosage: 850 MG, 3X/DAY
  7. VITAMIN D3 [Concomitant]
     Active Substance: CHOLECALCIFEROL
     Dosage: 5000 IU, UNK
  8. KETOROLAC [Concomitant]
     Active Substance: KETOROLAC\KETOROLAC TROMETHAMINE
     Dosage: 60 MG, PRN
     Route: 030
  9. ZYRTEC [Concomitant]
     Active Substance: CETIRIZINE HYDROCHLORIDE
     Indication: HYPERSENSITIVITY
     Dosage: 10 MG, QD
  10. LASIX [Concomitant]
     Active Substance: FUROSEMIDE
     Dosage: 40 MG, PM
  11. LORCET [Concomitant]
     Active Substance: ACETAMINOPHEN\HYDROCODONE BITARTRATE
     Indication: BREAKTHROUGH PAIN
     Dosage: 5 UNK, DAILY (ONE 3XDAY, 2 AT HS)
  12. DEPO-TESTOSTERONE [Concomitant]
     Active Substance: TESTOSTERONE CYPIONATE
     Dosage: 1 CC (200 MG), WEEKLY
     Route: 030
  13. POTASSIUM CHLORIDE. [Concomitant]
     Active Substance: POTASSIUM CHLORIDE
     Dosage: 20 MEQ, PM WITH LASIX
  14. PROAIR HFA [Concomitant]
     Active Substance: ALBUTEROL SULFATE
     Dosage: UNK, PM
  15. OXYGEN. [Concomitant]
     Active Substance: OXYGEN
     Dosage: 3 L, 1 MIN CONT, WITH CP AP AT NIGHT
  16. METHYLPHENIDATE [Concomitant]
     Active Substance: METHYLPHENIDATE
     Dosage: 20 MG, 3X/DAY
  17. LEVOTHYROXINE [Concomitant]
     Active Substance: LEVOTHYROXINE
     Dosage: 0.3 UNK, DAILY
  18. TEMAZEPAM. [Concomitant]
     Active Substance: TEMAZEPAM
     Dosage: 30 MG, AT HSPM
  19. SERTRALINE [Concomitant]
     Active Substance: SERTRALINE HYDROCHLORIDE
     Dosage: 200 MG, QD
     Route: 048
  20. SOMA [Concomitant]
     Active Substance: CARISOPRODOL
     Dosage: 350 MG, 1, 2X/DAY AS NEEDED
  21. MS CONTIN [Concomitant]
     Active Substance: MORPHINE SULFATE
     Dosage: 200 MG, 3X/DAY
  22. ZANAFLEX [Concomitant]
     Active Substance: TIZANIDINE HYDROCHLORIDE
     Dosage: 4 MG, 2 TABS 2X/DAY
  23. VENLAFAXINE ER [Concomitant]
     Active Substance: VENLAFAXINE HYDROCHLORIDE
     Dosage: 150 MG, 2 IN AM AND 2 IN PM
  24. TEGRETOL [Concomitant]
     Active Substance: CARBAMAZEPINE
     Dosage: 200 MG, 2 X DAY
  25. PHENERGAN [Concomitant]
     Active Substance: PROMETHAZINE HYDROCHLORIDE
     Dosage: 50 MG, PM PO OR IM
  26. LYRICA [Suspect]
     Active Substance: PREGABALIN
     Dosage: 225MG X 2 A DAY
  27. GLYBURIDE. [Concomitant]
     Active Substance: GLYBURIDE
     Dosage: 5 MG, 2 IN AM, 2 AT SUPPER
  28. INSULIN [Concomitant]
     Active Substance: INSULIN NOS
     Dosage: 70/30-40U IN AM, 25U IN PM
  29. OMEPRAZOLE. [Concomitant]
     Active Substance: OMEPRAZOLE
     Dosage: 20 MG, 2X/DAY
  30. XANAX [Concomitant]
     Active Substance: ALPRAZOLAM
     Dosage: 2 MG, AS NEEDED

REACTIONS (1)
  - Withdrawal syndrome [Unknown]
